FAERS Safety Report 5102808-6 (Version None)
Quarter: 2006Q3

REPORT INFORMATION
  Report Type: 
  Country: None (occurrence: None)
  Receive Date: 20060907
  Receipt Date: 20060828
  Transmission Date: 20061208
  Serious: Yes (Hospitalization, Other)
  Sender: FDA-Public Use
  Company Number: 2006104931

PATIENT
  Sex: Female

DRUGS (2)
  1. LYRICA [Suspect]
     Indication: DRUG USE FOR UNKNOWN INDICATION
     Dosage: ORAL
     Route: 048
  2. FENTANYL [Concomitant]

REACTIONS (4)
  - FALL [None]
  - HALLUCINATION [None]
  - LOWER LIMB FRACTURE [None]
  - SOMNOLENCE [None]
